FAERS Safety Report 21044377 (Version 1)
Quarter: 2022Q3

REPORT INFORMATION
  Report Type: Spontaneous
  Country: US (occurrence: None)
  Receive Date: 20220703
  Receipt Date: 20220703
  Transmission Date: 20221026
  Serious: No
  Sender: FDA-Public Use
  Company Number: None

PATIENT
  Age: 42 Year
  Sex: Female
  Weight: 123.3 kg

DRUGS (12)
  1. OXYCODONE AND ACETAMINOPHEN [Suspect]
     Active Substance: ACETAMINOPHEN\OXYCODONE HYDROCHLORIDE
     Indication: Pain
     Dosage: 1 TABLET EVERY 4 HOURS ORAL
     Route: 048
     Dates: start: 20220610, end: 20220620
  2. METOPROLOL TARTRATE [Concomitant]
     Active Substance: METOPROLOL TARTRATE
  3. XANAX [Concomitant]
     Active Substance: ALPRAZOLAM
  4. OXYCODONE [Concomitant]
     Active Substance: OXYCODONE
  5. ADDERALL [Concomitant]
     Active Substance: AMPHETAMINE ASPARTATE\AMPHETAMINE SULFATE\DEXTROAMPHETAMINE SACCHARATE\DEXTROAMPHETAMINE SULFATE
  6. CYMBALTA [Concomitant]
     Active Substance: DULOXETINE HYDROCHLORIDE
  7. lift in left shoe [Concomitant]
  8. cane [Concomitant]
  9. Flintstone Complete Chewable Vitamins [Concomitant]
  10. SENNA PLUS [Concomitant]
     Active Substance: DOCUSATE SODIUM\SENNOSIDES\SENNOSIDES A AND B
  11. Pepcid Complete Chewables [Concomitant]
  12. IBUPROFEN [Concomitant]
     Active Substance: IBUPROFEN

REACTIONS (7)
  - Product substitution issue [None]
  - Drug ineffective [None]
  - Extra dose administered [None]
  - Abdominal discomfort [None]
  - Headache [None]
  - Nausea [None]
  - Pain [None]

NARRATIVE: CASE EVENT DATE: 20220611
